FAERS Safety Report 10571609 (Version 1)
Quarter: 2014Q4

REPORT INFORMATION
  Report Type: Spontaneous
  Country: DE (occurrence: DE)
  Receive Date: 20141107
  Receipt Date: 20141107
  Transmission Date: 20150529
  Serious: Yes (Hospitalization)
  Sender: FDA-Public Use
  Company Number: DE-MYLANLABS-2014M1009202

PATIENT

DRUGS (4)
  1. TOREM                              /01036501/ [Suspect]
     Active Substance: TORSEMIDE
     Indication: PRODUCT USED FOR UNKNOWN INDICATION
     Dosage: 100 MG, TOTAL
     Route: 048
     Dates: start: 20140319, end: 20140319
  2. RANIDURA T 300 MG [Suspect]
     Active Substance: RANITIDINE HYDROCHLORIDE
     Indication: PRODUCT USED FOR UNKNOWN INDICATION
     Dosage: 1200 MG, ONCE (300MG 4 TABLETS AT ONCE)
     Route: 048
     Dates: start: 20140319, end: 20140319
  3. IBUPROFEN. [Suspect]
     Active Substance: IBUPROFEN
     Indication: PRODUCT USED FOR UNKNOWN INDICATION
     Dosage: 8000 MG, ONCE (800MG, 10 TABLETS AT ONCE)
     Route: 048
     Dates: start: 20140319, end: 20140319
  4. ASPIRIN                            /00002701/ [Suspect]
     Active Substance: ASPIRIN
     Indication: PRODUCT USED FOR UNKNOWN INDICATION
     Dosage: 17000 MG, ONCE (100MG, 170 TABLETS AT ONCE)
     Route: 048
     Dates: start: 20140319, end: 20140319

REACTIONS (10)
  - PO2 increased [None]
  - Vomiting [Recovered/Resolved]
  - Prothrombin time prolonged [None]
  - Tachycardia [Recovered/Resolved]
  - Blood potassium decreased [None]
  - Blood pH increased [None]
  - Suicide attempt [Recovered/Resolved]
  - Overdose [Recovered/Resolved]
  - Intentional overdose [None]
  - PCO2 decreased [None]

NARRATIVE: CASE EVENT DATE: 20140319
